FAERS Safety Report 15128846 (Version 1)
Quarter: 2018Q3

REPORT INFORMATION
  Report Type: Spontaneous
  Country: CN (occurrence: CN)
  Receive Date: 20180711
  Receipt Date: 20180711
  Transmission Date: 20181010
  Serious: Yes (Other)
  Sender: FDA-Public Use
  Company Number: CN-BAXTER-2018BAX018808

PATIENT
  Age: 46 Year
  Sex: Male
  Weight: 65 kg

DRUGS (3)
  1. SODIUM CHLORIDE. [Suspect]
     Active Substance: SODIUM CHLORIDE
     Indication: INFECTION
     Route: 041
     Dates: start: 20180416, end: 20180425
  2. 5% GLUCOSE  INJECTION [Suspect]
     Active Substance: DEXTROSE
     Indication: BLOOD DISORDER
     Route: 041
     Dates: start: 20180416, end: 20180425
  3. FANSHENG SHUFU (CEFTRIAXONE SODIUM) [Suspect]
     Active Substance: CEFTRIAXONE SODIUM
     Indication: INFECTION
     Route: 041
     Dates: start: 20180416, end: 20180425

REACTIONS (1)
  - Rash pruritic [Recovered/Resolved]

NARRATIVE: CASE EVENT DATE: 20180425
